FAERS Safety Report 19282772 (Version 1)
Quarter: 2021Q2

REPORT INFORMATION
  Report Type: Spontaneous
  Country: US (occurrence: US)
  Receive Date: 20210520
  Receipt Date: 20210520
  Transmission Date: 20210717
  Serious: Yes (Other)
  Sender: FDA-Public Use
  Company Number: None

PATIENT
  Age: 67 Year
  Sex: Male
  Weight: 81 kg

DRUGS (1)
  1. GAMMAPLEX [Suspect]
     Active Substance: HUMAN IMMUNOGLOBULIN G
     Indication: MYOSITIS
     Dosage: ?          OTHER FREQUENCY:EVERY 3 WEEKS;?
     Route: 042

REACTIONS (3)
  - Infusion related reaction [None]
  - Urticaria [None]
  - Rash [None]

NARRATIVE: CASE EVENT DATE: 20210428
